FAERS Safety Report 21222671 (Version 1)
Quarter: 2022Q3

REPORT INFORMATION
  Report Type: Spontaneous
  Country: US (occurrence: None)
  Receive Date: 20220816
  Receipt Date: 20220816
  Transmission Date: 20221027
  Serious: Yes (Hospitalization)
  Sender: FDA-Public Use
  Company Number: None

PATIENT
  Age: 54 Year
  Sex: Male

DRUGS (10)
  1. OPSUMIT [Suspect]
     Active Substance: MACITENTAN
     Indication: Pulmonary hypertension
     Dosage: FREQUENCY : DAILY;?
     Route: 048
     Dates: start: 20200106
  2. FUROSEMIDE [Concomitant]
     Active Substance: FUROSEMIDE
  3. METOLAZONE [Concomitant]
     Active Substance: METOLAZONE
  4. OXYGEN INTRANASAL [Concomitant]
  5. CALCITRIOL [Concomitant]
  6. WARFARIN [Concomitant]
     Active Substance: WARFARIN
  7. ATORVASTATIN [Concomitant]
     Active Substance: ATORVASTATIN
  8. VITAMIN D2 [Concomitant]
     Active Substance: ERGOCALCIFEROL
  9. OMEPRAZOLE [Concomitant]
     Active Substance: OMEPRAZOLE
  10. BETAMETHASONE DIPROPIONATE [Concomitant]

REACTIONS (1)
  - Right ventricular failure [None]

NARRATIVE: CASE EVENT DATE: 20220712
